FAERS Safety Report 20561849 (Version 1)
Quarter: 2022Q1

REPORT INFORMATION
  Report Type: Spontaneous
  Country: US (occurrence: None)
  Receive Date: 20220307
  Receipt Date: 20220307
  Transmission Date: 20220423
  Serious: Yes (Hospitalization)
  Sender: FDA-Public Use
  Company Number: None

PATIENT
  Age: 56 Year
  Sex: Female

DRUGS (15)
  1. FASENRA [Suspect]
     Active Substance: BENRALIZUMAB
     Indication: Asthma
     Dosage: INJECT 1 PEN UNDER THE SKIN (SUBCUTANEOUS INJECTION) EVERY 8 WEEKS
     Route: 058
     Dates: start: 20210415
  2. ALBUTEROL SULFATE [Concomitant]
     Active Substance: ALBUTEROL SULFATE
  3. ALEVE [Concomitant]
     Active Substance: NAPROXEN SODIUM
  4. ASPIRIN [Concomitant]
     Active Substance: ASPIRIN
  5. ATORVASTATIN [Concomitant]
     Active Substance: ATORVASTATIN
  6. CALCIUM ACETATE [Concomitant]
     Active Substance: CALCIUM ACETATE
  7. DILTIAZEM [Concomitant]
     Active Substance: DILTIAZEM
  8. FUROSEMIDE [Concomitant]
     Active Substance: FUROSEMIDE
  9. HUMALOG [Concomitant]
     Active Substance: INSULIN LISPRO
  10. LANTUS [Concomitant]
     Active Substance: INSULIN GLARGINE
  11. LISINOPRIL [Concomitant]
     Active Substance: LISINOPRIL
  12. METOPROL TAR [Concomitant]
  13. PANTOPRAZOLE [Concomitant]
     Active Substance: PANTOPRAZOLE
  14. SINGULAIR [Concomitant]
     Active Substance: MONTELUKAST SODIUM
  15. SYMBICORT [Concomitant]
     Active Substance: BUDESONIDE\FORMOTEROL FUMARATE DIHYDRATE

REACTIONS (1)
  - Dyspnoea [None]

NARRATIVE: CASE EVENT DATE: 20220201
